FAERS Safety Report 10625446 (Version 1)
Quarter: 2014Q4

REPORT INFORMATION
  Report Type: Spontaneous
  Country: US (occurrence: None)
  Receive Date: 20141121
  Receipt Date: 20141121
  Transmission Date: 20150529
  Serious: Yes (Other)
  Sender: FDA-Public Use
  Company Number: AUR-APL-2014-09048

PATIENT
  Age: 57 Year
  Sex: Male
  Weight: 79.4 kg

DRUGS (3)
  1. MELOXICAM. [Suspect]
     Active Substance: MELOXICAM
     Indication: ARTHRITIS
     Dates: start: 201301, end: 201301
  2. ZYRTEC [Concomitant]
     Active Substance: CETIRIZINE HYDROCHLORIDE
  3. LODINE [Suspect]
     Active Substance: ETODOLAC
     Indication: ARTHRITIS
     Dosage: UNK
     Dates: start: 2013

REACTIONS (1)
  - Gastric haemorrhage [None]

NARRATIVE: CASE EVENT DATE: 2013
